FAERS Safety Report 17083577 (Version 2)
Quarter: 2020Q1

REPORT INFORMATION
  Report Type: Spontaneous
  Country: US (occurrence: US)
  Receive Date: 20191127
  Receipt Date: 20200103
  Transmission Date: 20200409
  Serious: No
  Sender: FDA-Public Use
  Company Number: US-ASTRAZENECA-2019SF54497

PATIENT
  Age: 70 Year
  Sex: Female
  Weight: 81.6 kg

DRUGS (1)
  1. BEVESPI AEROSPHERE [Suspect]
     Active Substance: FORMOTEROL FUMARATE\GLYCOPYRROLATE
     Dosage: 9MCG/4.8MCG ONE PUFF TWICE DAILY
     Route: 055
     Dates: start: 20190501

REACTIONS (2)
  - Device malfunction [Unknown]
  - Dyspnoea [Unknown]
